FAERS Safety Report 8165738-1 (Version None)
Quarter: 2012Q1

REPORT INFORMATION
  Report Type: 
  Country: None (occurrence: None)
  Receive Date: 20120227
  Receipt Date: 20110107
  Transmission Date: 20120608
  Serious: No
  Sender: FDA-Public Use
  Company Number: US-MYLANLABS-2011S1000739

PATIENT
  Age: 20 Year
  Sex: Male

DRUGS (5)
  1. CLARAVIS [Suspect]
  2. SOTRET [Suspect]
  3. AMNESTEEM [Suspect]
  4. AMNESTEEM [Suspect]
  5. CLARAVIS [Suspect]

REACTIONS (1)
  - BLOOD CHOLESTEROL INCREASED [None]
